FAERS Safety Report 13067955 (Version 2)
Quarter: 2017Q1

REPORT INFORMATION
  Report Type: Spontaneous
  Country: JP (occurrence: JP)
  Receive Date: 20161228
  Receipt Date: 20170209
  Transmission Date: 20170428
  Serious: Yes (Hospitalization)
  Sender: FDA-Public Use
  Company Number: PHJP2016JP037599

PATIENT
  Age: 30 Year
  Sex: Male

DRUGS (2)
  1. COSENTYX [Suspect]
     Active Substance: SECUKINUMAB
     Indication: PSORIASIS
     Route: 058
     Dates: start: 201504
  2. COSENTYX [Suspect]
     Active Substance: SECUKINUMAB
     Dosage: 300 MG, PER ADMINISTRATION
     Route: 058

REACTIONS (8)
  - Nausea [Unknown]
  - Cellulitis [Unknown]
  - Encephalopathy [Not Recovered/Not Resolved]
  - Headache [Unknown]
  - Intracranial pressure increased [Not Recovered/Not Resolved]
  - Encephalitis [Not Recovered/Not Resolved]
  - Pyrexia [Not Recovered/Not Resolved]
  - Malaise [Unknown]

NARRATIVE: CASE EVENT DATE: 20161220
